FAERS Safety Report 8562447-1 (Version None)
Quarter: 2012Q3

REPORT INFORMATION
  Report Type: 
  Country: None (occurrence: None)
  Receive Date: 20120802
  Receipt Date: 20120710
  Transmission Date: 20120928
  Serious: No
  Sender: FDA-Public Use
  Company Number: US-AMGEN-USASP2011065866

PATIENT
  Age: 52 Year
  Sex: Female

DRUGS (4)
  1. ENBREL [Suspect]
     Indication: RHEUMATOID ARTHRITIS
     Dosage: 50 MG, QWK
     Dates: start: 20110923, end: 20111130
  2. ENBREL [Suspect]
     Indication: EMPHYSEMA
  3. ENBREL [Suspect]
     Indication: OSTEOARTHRITIS
  4. ENBREL [Suspect]
     Indication: SYSTEMIC LUPUS ERYTHEMATOSUS

REACTIONS (5)
  - RHEUMATOID ARTHRITIS [None]
  - SYNOVIAL CYST [None]
  - DRUG INEFFECTIVE [None]
  - DIARRHOEA [None]
  - ABDOMINAL PAIN UPPER [None]
